FAERS Safety Report 15579421 (Version 1)
Quarter: 2018Q4

REPORT INFORMATION
  Report Type: Report from Study
  Country: US (occurrence: US)
  Receive Date: 20181102
  Receipt Date: 20181102
  Transmission Date: 20190205
  Serious: Yes (Hospitalization)
  Sender: FDA-Public Use
  Company Number: US-BAYER-2018-199418

PATIENT
  Age: 73 Year
  Sex: Female

DRUGS (2)
  1. NEXAVAR [Suspect]
     Active Substance: SORAFENIB
     Indication: CHOLANGIOCARCINOMA
  2. NEXAVAR [Suspect]
     Active Substance: SORAFENIB
     Indication: HEPATIC CANCER
     Dosage: 400 MG, BID
     Route: 048
     Dates: start: 20180814, end: 2018

REACTIONS (3)
  - Fatigue [Not Recovered/Not Resolved]
  - Urinary tract infection [Unknown]
  - Ammonia increased [Unknown]

NARRATIVE: CASE EVENT DATE: 2018
